FAERS Safety Report 10510786 (Version 2)
Quarter: 2014Q4

REPORT INFORMATION
  Report Type: Spontaneous
  Country: US (occurrence: US)
  Receive Date: 20141010
  Receipt Date: 20141014
  Transmission Date: 20150528
  Serious: Yes (Hospitalization)
  Sender: FDA-Public Use
  Company Number: US-PFIZER INC-2014277369

PATIENT
  Age: 60 Year
  Sex: Female
  Weight: 75 kg

DRUGS (1)
  1. SUTENT [Suspect]
     Active Substance: SUNITINIB MALATE
     Indication: RENAL CANCER
     Dosage: UNKNOWN DOSE CYCLIC, ON AND OFF

REACTIONS (4)
  - Weight increased [Unknown]
  - Pain [Unknown]
  - Haematoma [Unknown]
  - Abdominal pain [Unknown]

NARRATIVE: CASE EVENT DATE: 20141001
